FAERS Safety Report 6460844-1 (Version None)
Quarter: 2009Q4

REPORT INFORMATION
  Report Type: 
  Country: None (occurrence: None)
  Receive Date: 20091130
  Receipt Date: 20091123
  Transmission Date: 20100525
  Serious: Yes (Other)
  Sender: FDA-Public Use
  Company Number: US-PFIZER INC-2009281520

PATIENT
  Sex: Female

DRUGS (7)
  1. AMLODIPINE BESYLATE [Suspect]
     Dosage: 10 MG, DAILY
     Dates: start: 20090601
  2. NORVASC [Suspect]
  3. ACTOS [Concomitant]
     Dosage: UNK
  4. BENAZEPRIL HYDROCHLORIDE [Concomitant]
     Dosage: UNK
  5. WARFARIN SODIUM [Concomitant]
     Dosage: UNK
  6. TOPROL-XL [Concomitant]
     Dosage: UNK
  7. DIGOXIN [Concomitant]
     Dosage: UNK

REACTIONS (2)
  - CONVULSION [None]
  - FOOD ALLERGY [None]
